FAERS Safety Report 9548806 (Version 1)
Quarter: 2013Q3

REPORT INFORMATION
  Report Type: Spontaneous
  Country: DE (occurrence: None)
  Receive Date: 20130919
  Receipt Date: 20130919
  Transmission Date: 20140515
  Serious: Yes (Other)
  Sender: FDA-Public Use
  Company Number: GER/GER/13/0034558

PATIENT
  Age: 35 Year
  Sex: Female
  Weight: 70 kg

DRUGS (5)
  1. LAMOTRIGINE (LAMOTRIGINE) [Suspect]
     Dosage: 100  MG, 3 IN 1 D, ORAL
     Route: 048
     Dates: start: 20070513, end: 20080225
  2. METOPROLOL (METOPROLOL) [Suspect]
     Indication: HYPERTENSION
     Route: 048
  3. QUETIAPINE (QUETIAPINE) [Suspect]
     Indication: BIPOLAR DISORDER
     Route: 048
  4. LITHIUM (LITHIUM) [Suspect]
     Indication: BIPOLAR DISORDER
     Route: 048
     Dates: start: 20070513, end: 20080225
  5. AUGMENTIN (AUGMENTIN / 00756801/) [Concomitant]

REACTIONS (5)
  - Gestational diabetes [None]
  - C-reactive protein increased [None]
  - Premature rupture of membranes [None]
  - Induced labour [None]
  - Exposure during pregnancy [None]
